FAERS Safety Report 9852584 (Version 3)
Quarter: 2014Q1

REPORT INFORMATION
  Report Type: Report from Study
  Country: US (occurrence: US)
  Receive Date: 20140129
  Receipt Date: 20140311
  Transmission Date: 20141002
  Serious: Yes (Hospitalization, Other)
  Sender: FDA-Public Use
  Company Number: US-JNJFOC-20140113193

PATIENT
  Age: 54 Year
  Sex: Female
  Weight: 92.08 kg

DRUGS (9)
  1. REMICADE [Suspect]
     Indication: RHEUMATOID ARTHRITIS
     Dosage: START DATE: 3-4 YEARS AGO
     Route: 042
     Dates: start: 2009
  2. SIMVASTATIN [Concomitant]
     Indication: BLOOD CHOLESTEROL
     Route: 048
  3. FOLIC ACID [Concomitant]
     Indication: VITAMIN SUPPLEMENTATION
     Route: 048
  4. METHOTREXATE [Concomitant]
     Indication: RHEUMATOID ARTHRITIS
     Route: 048
  5. ADVAIR [Concomitant]
     Indication: ASTHMA
     Route: 055
  6. LEVOTHYROXINE [Concomitant]
     Indication: THYROID DISORDER
     Route: 048
  7. MELOXICAM [Concomitant]
     Indication: LOCAL SWELLING
     Route: 048
  8. TRAMADOL [Concomitant]
     Indication: PAIN
     Route: 048
  9. CYMBALTA [Concomitant]
     Indication: SPONDYLITIS
     Route: 048
     Dates: start: 2013

REACTIONS (4)
  - Osteoarthritis [Recovering/Resolving]
  - Synovial cyst [Unknown]
  - Meniscus injury [Unknown]
  - Rash [Not Recovered/Not Resolved]
